FAERS Safety Report 23752212 (Version 4)
Quarter: 2024Q3

REPORT INFORMATION
  Report Type: Spontaneous
  Country: US (occurrence: US)
  Receive Date: 20240417
  Receipt Date: 20240917
  Transmission Date: 20241017
  Serious: Yes (Other)
  Sender: SANOFI AVENTIS
  Company Number: US-SA-SAC20240416000561

PATIENT
  Age: 10 Year
  Sex: Female

DRUGS (1)
  1. DUPIXENT [Suspect]
     Active Substance: DUPILUMAB
     Indication: Eosinophilic oesophagitis
     Dosage: 300 MG, QOW
     Route: 058
     Dates: start: 20240229

REACTIONS (13)
  - Gastric ulcer [Unknown]
  - Injection site pain [Unknown]
  - Injection site bruising [Unknown]
  - Device difficult to use [Unknown]
  - Anxiety [Not Recovered/Not Resolved]
  - Fear of injection [Not Recovered/Not Resolved]
  - Abnormal dreams [Unknown]
  - Throat tightness [Recovered/Resolved]
  - Vomiting [Unknown]
  - Nightmare [Unknown]
  - Abdominal pain upper [Unknown]
  - Abdominal discomfort [Unknown]
  - Nausea [Unknown]

NARRATIVE: CASE EVENT DATE: 20240101
